FAERS Safety Report 14505895 (Version 1)
Quarter: 2018Q1

REPORT INFORMATION
  Report Type: Spontaneous
  Country: US (occurrence: US)
  Receive Date: 20180208
  Receipt Date: 20180208
  Transmission Date: 20180509
  Serious: No
  Sender: FDA-Public Use
  Company Number: US-HQ SPECIALTY-US-2017INT000219

PATIENT

DRUGS (3)
  1. TAXOL [Suspect]
     Active Substance: PACLITAXEL
     Dosage: UNK, CYCLE 3, 3 WEEKS ON ONE WEEK OFFUNK
  2. TAXOL [Suspect]
     Active Substance: PACLITAXEL
     Dosage: UNK, CYCLE 2, 3 WEEKS ON ONE WEEK OFFUNK
  3. TAXOL [Suspect]
     Active Substance: PACLITAXEL
     Indication: BREAST CANCER METASTATIC
     Dosage: UNK, CYCLE 1, 3 WEEKS ON ONE WEEK OFF

REACTIONS (1)
  - Neuropathy peripheral [Unknown]
